FAERS Safety Report 9281673 (Version 5)
Quarter: 2014Q3

REPORT INFORMATION
  Report Type: Spontaneous
  Country: US (occurrence: US)
  Receive Date: 20130509
  Receipt Date: 20140721
  Transmission Date: 20150326
  Serious: Yes (Hospitalization, Other)
  Sender: FDA-Public Use
  Company Number: US-009507513-1305USA001723

PATIENT
  Sex: Female
  Weight: 79.37 kg

DRUGS (4)
  1. NUVARING [Suspect]
     Active Substance: ETHINYL ESTRADIOL\ETONOGESTREL
     Dosage: UNK
     Route: 067
     Dates: start: 200609
  2. ALBUTEROL. [Concomitant]
     Active Substance: ALBUTEROL
  3. FLOVENT [Concomitant]
     Active Substance: FLUTICASONE PROPIONATE
  4. NUVARING [Suspect]
     Active Substance: ETHINYL ESTRADIOL\ETONOGESTREL
     Indication: CONTRACEPTION
     Dosage: 3 WEEKS IN/1 WEEK OUT
     Route: 067
     Dates: start: 20060128, end: 20091030

REACTIONS (13)
  - Skin lesion [Unknown]
  - Pulmonary embolism [Unknown]
  - Skin abrasion [Unknown]
  - Bursitis [Recovering/Resolving]
  - Renal cyst haemorrhage [Unknown]
  - Haematoma [Unknown]
  - Myopia [Unknown]
  - Acne [Unknown]
  - Foot deformity [Unknown]
  - Bunion operation [Unknown]
  - Depression [Unknown]
  - Tendonitis [Unknown]
  - Astigmatism [Unknown]

NARRATIVE: CASE EVENT DATE: 20060918
